FAERS Safety Report 10250335 (Version 2)
Quarter: 2014Q3

REPORT INFORMATION
  Report Type: Spontaneous
  Country: US (occurrence: None)
  Receive Date: 20140618
  Receipt Date: 20140925
  Transmission Date: 20150326
  Serious: Yes (Disabling, Other)
  Sender: FDA-Public Use
  Company Number: 2014-19739

PATIENT
  Age: 91 Year
  Sex: Female

DRUGS (1)
  1. EYLEA [Suspect]
     Active Substance: AFLIBERCEPT
     Indication: AGE-RELATED MACULAR DEGENERATION
     Route: 031
     Dates: start: 20121004

REACTIONS (3)
  - Endophthalmitis [None]
  - Blindness [None]
  - Blindness unilateral [None]

NARRATIVE: CASE EVENT DATE: 20140606
